FAERS Safety Report 9506299 (Version 1)
Quarter: 2013Q1

REPORT INFORMATION
  Report Type: Spontaneous
  Country: US (occurrence: None)
  Receive Date: 20130301
  Receipt Date: 20130301
  Transmission Date: 20140127
  Serious: Yes (Hospitalization)
  Sender: FDA-Public Use
  Company Number: RB-40037-2012

PATIENT
  Age: 46 Year
  Sex: Male

DRUGS (9)
  1. SUBOXONE [Suspect]
     Indication: DRUG DEPENDENCE
     Route: 060
     Dates: start: 201204
  2. LISINOPRIL [Concomitant]
  3. XANAX [Concomitant]
  4. NOVOLOG [Concomitant]
  5. LASIX [Concomitant]
  6. LEVEMIR [Concomitant]
  7. NEURONTIN [Concomitant]
  8. PROVENTIL [Concomitant]
  9. OMEPRAZOLE [Concomitant]

REACTIONS (5)
  - Oedema peripheral [None]
  - Heart rate increased [None]
  - Hallucination, auditory [None]
  - Feeling hot [None]
  - Headache [None]
